FAERS Safety Report 4367119-5 (Version None)
Quarter: 2004Q2

REPORT INFORMATION
  Report Type: 
  Country: None (occurrence: None)
  Receive Date: 20040528
  Receipt Date: 20040525
  Transmission Date: 20050107
  Serious: Yes (Hospitalization)
  Sender: FDA-Public Use
  Company Number: #81

PATIENT
  Age: 62 Year
  Sex: Male

DRUGS (2)
  1. MELPHALAN [Suspect]
     Indication: MULTIPLE MYELOMA
     Dosage: 384MG PER DAY
     Route: 042
     Dates: start: 19990824, end: 19990824
  2. THALIDOMIDE [Suspect]
     Indication: MULTIPLE MYELOMA
     Dosage: 200MG PER DAY
     Route: 048
     Dates: start: 19991005, end: 20000120

REACTIONS (3)
  - LUNG INFILTRATION [None]
  - PYREXIA [None]
  - UPPER RESPIRATORY TRACT INFECTION [None]
